FAERS Safety Report 8144634-X (Version None)
Quarter: 2012Q1

REPORT INFORMATION
  Report Type: 
  Country: None (occurrence: None)
  Receive Date: 20120217
  Receipt Date: 20101007
  Transmission Date: 20120608
  Serious: Yes (Death, Other)
  Sender: FDA-Public Use
  Company Number: FR-ROCHE-1037746

PATIENT

DRUGS (2)
  1. XELODA [Suspect]
     Indication: BREAST CANCER
     Dosage: DAYS 1-14 OF A 21 DAY CYCLE
     Route: 065
  2. IXABEPILONE [Suspect]
     Indication: BREAST CANCER
     Dosage: DAY 1 OF A 21 DAY CYCLE
     Route: 042

REACTIONS (13)
  - NEUTROPENIA [None]
  - LEUKOPENIA [None]
  - FEBRILE NEUTROPENIA [None]
  - FATIGUE [None]
  - ARTHRALGIA [None]
  - STOMATITIS [None]
  - DEATH [None]
  - ANAEMIA [None]
  - PALMAR-PLANTAR ERYTHRODYSAESTHESIA SYNDROME [None]
  - DIARRHOEA [None]
  - MYALGIA [None]
  - NEUROPATHY PERIPHERAL [None]
  - THROMBOCYTOPENIA [None]
